FAERS Safety Report 7248444-7 (Version None)
Quarter: 2011Q1

REPORT INFORMATION
  Report Type: 
  Country: None (occurrence: None)
  Receive Date: 20110127
  Receipt Date: 20110124
  Transmission Date: 20110831
  Serious: Yes (Life-Threatening, Other)
  Sender: FDA-Public Use
  Company Number: IT-ELI_LILLY_AND_COMPANY-IT201101005560

PATIENT
  Sex: Male

DRUGS (3)
  1. HUMALOG MIX 50/50 [Suspect]
     Indication: TYPE 1 DIABETES MELLITUS
     Dosage: 18 D/F, DAILY (1/D)
     Route: 058
     Dates: start: 20091117, end: 20101117
  2. HUMALOG [Suspect]
     Indication: TYPE 1 DIABETES MELLITUS
     Dosage: 20 D/F, DAILY (1/D)
     Route: 058
     Dates: start: 20091117, end: 20101117
  3. LANTUS [Concomitant]
     Indication: TYPE 1 DIABETES MELLITUS
     Dosage: 18 D/F, DAILY (1/D)
     Route: 058
     Dates: start: 20091117, end: 20101117

REACTIONS (2)
  - DRUG ADMINISTRATION ERROR [None]
  - HYPOGLYCAEMIC COMA [None]
